FAERS Safety Report 16719972 (Version 1)
Quarter: 2019Q3

REPORT INFORMATION
  Report Type: Spontaneous
  Country: US (occurrence: US)
  Receive Date: 20190819
  Receipt Date: 20190819
  Transmission Date: 20191005
  Serious: Yes (Hospitalization)
  Sender: FDA-Public Use
  Company Number: None

PATIENT
  Age: 68 Year
  Sex: Male

DRUGS (7)
  1. WARFARAIN 50MG [Concomitant]
     Dates: start: 20181115
  2. DILTIAZEM 30MG [Concomitant]
     Dates: start: 20180918
  3. DIPHENOXALYRE/ATROPINE [Concomitant]
     Dates: start: 20190605
  4. METHADOEN 10MG [Concomitant]
     Dates: start: 20190514
  5. SEVELAMER 800MG [Concomitant]
     Dates: start: 20190716
  6. VOTRIENT [Suspect]
     Active Substance: PAZOPANIB HYDROCHLORIDE
     Indication: RENAL CELL CARCINOMA
     Route: 048
     Dates: start: 20190327, end: 20190717
  7. LEVOTHYROXINE 0.025 [Concomitant]
     Dates: start: 20190619

REACTIONS (2)
  - International normalised ratio abnormal [None]
  - Diarrhoea [None]

NARRATIVE: CASE EVENT DATE: 20190717
